FAERS Safety Report 15014429 (Version 1)
Quarter: 2018Q3

REPORT INFORMATION
  Report Type: Spontaneous
  Country: US (occurrence: US)
  Receive Date: 20180615
  Receipt Date: 20180615
  Transmission Date: 20181010
  Serious: No
  Sender: FDA-Public Use
  Company Number: US-LUPIN PHARMACEUTICALS INC.-2018-03406

PATIENT

DRUGS (2)
  1. SYNTHROID [Concomitant]
     Active Substance: LEVOTHYROXINE SODIUM
     Indication: PRODUCT USED FOR UNKNOWN INDICATION
     Dosage: UNK
     Route: 065
  2. DICLOFENAC SODIUM TOPICAL SOLUTION, 1.5% [Suspect]
     Active Substance: DICLOFENAC SODIUM
     Indication: OSTEOARTHRITIS
     Dosage: 150 ML, BID
     Route: 061
     Dates: start: 20180418

REACTIONS (5)
  - Product physical consistency issue [None]
  - Product container seal issue [None]
  - Drug ineffective [Not Recovered/Not Resolved]
  - Product substitution issue [None]
  - Product quality issue [Unknown]

NARRATIVE: CASE EVENT DATE: 20180418
